FAERS Safety Report 16649439 (Version 1)
Quarter: 2019Q3

REPORT INFORMATION
  Report Type: Spontaneous
  Country: US (occurrence: US)
  Receive Date: 20190730
  Receipt Date: 20190730
  Transmission Date: 20191004
  Serious: Yes (Other)
  Sender: FDA-Public Use
  Company Number: US-GE HEALTHCARE LIFE SCIENCES-2019CSU003770

PATIENT
  Age: 68 Year
  Sex: Female

DRUGS (2)
  1. OPTISON [Suspect]
     Active Substance: ALBUMIN HUMAN
     Indication: DIAGNOSTIC PROCEDURE
     Dosage: 1 ML, SINGLE
     Route: 042
     Dates: start: 20190718, end: 20190718
  2. OPTISON [Suspect]
     Active Substance: ALBUMIN HUMAN
     Indication: PRODUCT USED FOR UNKNOWN INDICATION

REACTIONS (3)
  - Atrial fibrillation [Recovered/Resolved]
  - Atrioventricular block [Recovered/Resolved]
  - Hypotension [Recovered/Resolved]

NARRATIVE: CASE EVENT DATE: 20190718
